FAERS Safety Report 8832383 (Version 1)
Quarter: 2012Q4

REPORT INFORMATION
  Report Type: 
  Country: US (occurrence: US)
  Receive Date: 20121009
  Receipt Date: 20121009
  Transmission Date: 20130627
  Serious: No
  Sender: FDA-Public Use
  Company Number: US-009507513-1210USA000889

PATIENT
  Age: 69 Year
  Sex: Female

DRUGS (3)
  1. JANUVIA [Suspect]
     Indication: PRODUCT USED FOR UNKNOWN INDICATION
  2. ONGLYZA [Suspect]
     Indication: PRODUCT USED FOR UNKNOWN INDICATION
  3. METFORMIN HYDROCHLORIDE [Suspect]
     Indication: PRODUCT USED FOR UNKNOWN INDICATION

REACTIONS (1)
  - Glycosylated haemoglobin increased [Unknown]
